FAERS Safety Report 7559622-1 (Version None)
Quarter: 2011Q2

REPORT INFORMATION
  Report Type: 
  Country: None (occurrence: None)
  Receive Date: 20110621
  Receipt Date: 20110615
  Transmission Date: 20111010
  Serious: Yes (Hospitalization, Disabling)
  Sender: FDA-Public Use
  Company Number: JP-PFIZER INC-2011117675

PATIENT
  Age: 78 Year
  Sex: Male
  Weight: 44 kg

DRUGS (13)
  1. ANPLAG [Concomitant]
     Indication: ARTERIOSCLEROSIS OBLITERANS
     Dosage: 100 MG, 3X/DAY
     Route: 048
  2. MUCOSOLVAN [Concomitant]
     Indication: CHRONIC OBSTRUCTIVE PULMONARY DISEASE
     Dosage: 45 MG, 1X/DAY
     Route: 048
  3. ADOAIR [Concomitant]
     Indication: CHRONIC OBSTRUCTIVE PULMONARY DISEASE
     Dosage: 250 UNK, 2X/DAY
     Route: 048
  4. VARENICLINE TARTRATE [Suspect]
     Dosage: 0.5 MG, 2X/DAY
     Route: 048
     Dates: start: 20110510, end: 20110513
  5. ALOSENN [Concomitant]
     Indication: CONSTIPATION
     Dosage: 1 G, 1X/DAY
     Route: 048
  6. LEVOFLOXACIN [Concomitant]
     Indication: URINARY TRACT INFECTION
     Dosage: 500 MG, 1X/DAY
     Route: 048
     Dates: start: 20110501, end: 20110519
  7. FLIVAS [Concomitant]
     Indication: BENIGN PROSTATIC HYPERPLASIA
     Dosage: 25 MG, 3X/DAY
     Route: 048
  8. METHYCOBAL [Concomitant]
     Dosage: 0.5 MG, 3X/DAY
     Route: 048
  9. ASPIRIN [Concomitant]
     Indication: ARTERIOSCLEROSIS OBLITERANS
     Dosage: 100 MG, 1X/DAY
     Route: 048
  10. MUCOSOLVAN [Concomitant]
     Indication: EMPHYSEMA
  11. VARENICLINE TARTRATE [Suspect]
     Indication: SMOKING CESSATION THERAPY
     Dosage: 0.5 MG, 1X/DAY
     Route: 048
     Dates: start: 20110507, end: 20110509
  12. VARENICLINE TARTRATE [Suspect]
     Dosage: 1.0 MG, 2X/DAY
     Route: 048
     Dates: start: 20110514, end: 20110517
  13. VESICARE [Concomitant]
     Indication: BENIGN PROSTATIC HYPERPLASIA
     Dosage: 2.5 MG, 3X/DAY
     Route: 048

REACTIONS (2)
  - CARDIOMEGALY [None]
  - DYSPNOEA [None]
